FAERS Safety Report 21476333 (Version 1)
Quarter: 2022Q4

REPORT INFORMATION
  Report Type: Spontaneous
  Country: US (occurrence: US)
  Receive Date: 20221019
  Receipt Date: 20221019
  Transmission Date: 20230113
  Serious: No
  Sender: FDA-Public Use
  Company Number: US-CELLTRION INC.-2021US016389

PATIENT

DRUGS (2)
  1. INFLECTRA [Suspect]
     Active Substance: INFLIXIMAB-DYYB
     Indication: Crohn^s disease
     Dosage: 400 MG, (EVERY 8 WEEKS BY INFUSION)
     Route: 065
     Dates: start: 201909
  2. AZATHIOPRINE [Concomitant]
     Active Substance: AZATHIOPRINE
     Indication: Crohn^s disease
     Dosage: 50MG TABLET, 1 TABLET TWICE DAILY

REACTIONS (3)
  - Weight increased [Unknown]
  - Intentional dose omission [Unknown]
  - Underdose [Unknown]
